FAERS Safety Report 4353203-9 (Version None)
Quarter: 2004Q2

REPORT INFORMATION
  Report Type: 
  Country: None (occurrence: None)
  Receive Date: 20040429
  Receipt Date: 20030501
  Transmission Date: 20050107
  Serious: Yes (Hospitalization)
  Sender: FDA-Public Use
  Company Number: REL-DIR-101

PATIENT
  Age: 68 Year
  Sex: Female
  Weight: 66.3 kg

DRUGS (5)
  1. DYNACIRC [Suspect]
     Indication: HYPERTENSION
     Dosage: 5 MG QD ORAL
     Route: 048
     Dates: end: 20021226
  2. NATEGLINIDE VS PLACEBO (CODE NOT BROKEN) TAB [Suspect]
     Indication: GLUCOSE TOLERANCE IMPAIRED
     Dosage: LEVEL 1, ORAL
     Route: 048
     Dates: start: 20021114
  3. PLACEBO OR VALSARTAN CAPSULE [Suspect]
     Indication: CARDIOVASCULAR DISORDER
     Dosage: LEVEL 1, ORAL
     Route: 048
     Dates: start: 20021114
  4. NATEGLINIDE VS PLACEBO TABLET REGIMEN #2 [Suspect]
     Dosage: LEVEL 2, ORAL
     Route: 048
  5. PLACEBO OR VALSARTAN REGIMEN #2 [Suspect]
     Dosage: LEVEL 2, ORAL
     Route: 048

REACTIONS (5)
  - CHEST PAIN [None]
  - COLD SWEAT [None]
  - DIZZINESS [None]
  - HYPOTENSION [None]
  - NAUSEA [None]
